FAERS Safety Report 9539362 (Version 3)
Quarter: 2014Q1

REPORT INFORMATION
  Report Type: Report from Study
  Country: US (occurrence: US)
  Receive Date: 20130920
  Receipt Date: 20140204
  Transmission Date: 20141002
  Serious: Yes (Hospitalization)
  Sender: FDA-Public Use
  Company Number: US-DENDREON CORPORATION-2013PROUSA03148

PATIENT
  Age: 68 Year
  Sex: Male
  Weight: 86.62 kg

DRUGS (19)
  1. SIPULEUCEL-T [Suspect]
     Indication: PROSTATE CANCER METASTATIC
     Dosage: 250 ML, SINGLE
     Route: 042
     Dates: start: 20111223, end: 20111223
  2. SIPULEUCEL-T [Suspect]
     Dosage: 250 ML, SINGLE
     Route: 042
     Dates: start: 20120113, end: 20120113
  3. SIPULEUCEL-T [Suspect]
     Dosage: 250 ML, SINGLE
     Route: 042
     Dates: start: 20120127, end: 20120127
  4. CRESTOR [Concomitant]
     Indication: HYPERCHOLESTEROLAEMIA
     Dosage: 40 MG, QD
  5. FENOFIBRATE [Concomitant]
     Indication: HYPERCHOLESTEROLAEMIA
     Dosage: 120 MG, QD
  6. LEVOTHYROXINE [Concomitant]
     Indication: HYPOTHYROIDISM
     Dosage: 75 MCG, UNK
  7. CASODEX [Concomitant]
     Indication: PROSTATE CANCER
     Dosage: 50 MG, UNK
  8. LUPRON [Concomitant]
     Indication: PROSTATE CANCER
     Dosage: 3 TIMES PER YEAR
  9. UROXATRAL [Concomitant]
     Indication: PROSTATOMEGALY
     Dosage: 10 MG, QD
  10. NEXIUM [Concomitant]
     Indication: GASTROOESOPHAGEAL REFLUX DISEASE
     Dosage: 20 MG, BID
  11. ASPIRIN [Concomitant]
     Indication: PROPHYLAXIS
     Dosage: 81 MG, QD
  12. ABIRATERONE [Concomitant]
     Indication: PROSTATE CANCER
     Dosage: 1000 MG, QD
     Dates: start: 20120703
  13. CALCIUM VITAMIN D [Concomitant]
     Dosage: UNK, QD
  14. VITAMIN D [Concomitant]
     Dosage: UNK, QD
  15. FISH OIL NATURE MADE [Concomitant]
     Dosage: 1000 UNK, QD
  16. MULTIVITAMIN [Concomitant]
     Dosage: UNK, QD
  17. LYCOPENE [Concomitant]
     Dosage: 10 MG, UNK
  18. PREDNISONE [Concomitant]
     Dosage: 5 UNK, BID
  19. BIOTIN [Concomitant]
     Dosage: 5000 UNK, QD

REACTIONS (1)
  - Cerebrovascular accident [Recovered/Resolved]
